FAERS Safety Report 26098193 (Version 1)
Quarter: 2025Q4

REPORT INFORMATION
  Report Type: Report from Study
  Country: US (occurrence: US)
  Receive Date: 20251127
  Receipt Date: 20251127
  Transmission Date: 20260117
  Serious: Yes (Disabling, Other)
  Sender: BAUSCH AND LOMB
  Company Number: US-BAUSCH-BL-2025-000503

PATIENT
  Age: 72 Year
  Sex: Male

DRUGS (3)
  1. XIFAXAN [Suspect]
     Active Substance: RIFAXIMIN
     Indication: Product used for unknown indication
     Route: 048
     Dates: end: 20250113
  2. XIFAXAN [Suspect]
     Active Substance: RIFAXIMIN
     Route: 048
  3. CEFEPIME [Concomitant]
     Active Substance: CEFEPIME HYDROCHLORIDE
     Indication: Product used for unknown indication

REACTIONS (7)
  - Leg amputation [Unknown]
  - Hepatic failure [Unknown]
  - Sensory loss [Unknown]
  - Wheelchair user [Unknown]
  - Cognitive disorder [Unknown]
  - Therapy interrupted [Unknown]
  - Insurance issue [Unknown]

NARRATIVE: CASE EVENT DATE: 20250113
